FAERS Safety Report 20034716 (Version 1)
Quarter: 2021Q4

REPORT INFORMATION
  Report Type: Spontaneous
  Country: CA (occurrence: CA)
  Receive Date: 20211104
  Receipt Date: 20211104
  Transmission Date: 20220303
  Serious: Yes (Other)
  Sender: FDA-Public Use
  Company Number: CA-PFIZER INC-202101456973

PATIENT
  Sex: Female

DRUGS (1)
  1. CELEBREX [Suspect]
     Active Substance: CELECOXIB
     Dosage: 100 MG, 2X/DAY
     Dates: start: 2018

REACTIONS (16)
  - Respiratory distress [Unknown]
  - Hypersensitivity [Unknown]
  - Cough [Unknown]
  - Dyspnoea [Unknown]
  - Fatigue [Unknown]
  - Asthma [Unknown]
  - Pulmonary pain [Unknown]
  - Muscle spasms [Unknown]
  - Hyperhidrosis [Unknown]
  - Arthropathy [Unknown]
  - Dyspepsia [Unknown]
  - Diarrhoea [Unknown]
  - Inflammation [Unknown]
  - Weight increased [Unknown]
  - Hepatic pain [Unknown]
  - Rhinorrhoea [Unknown]

NARRATIVE: CASE EVENT DATE: 20180101
